FAERS Safety Report 25778409 (Version 2)
Quarter: 2025Q3

REPORT INFORMATION
  Report Type: Spontaneous
  Country: EU (occurrence: EU)
  Receive Date: 20250909
  Receipt Date: 20250919
  Transmission Date: 20251020
  Serious: Yes (Hospitalization, Other)
  Sender: AUROBINDO
  Company Number: EU-MLMSERVICE-20250818-PI616687-00149-1

PATIENT
  Age: 71 Year
  Sex: Male

DRUGS (1)
  1. FLECAINIDE [Suspect]
     Active Substance: FLECAINIDE
     Indication: Atrial fibrillation
     Route: 065

REACTIONS (4)
  - Acute kidney injury [Recovering/Resolving]
  - Cardiac failure acute [Recovered/Resolved]
  - Hepatic function abnormal [Recovering/Resolving]
  - Atrioventricular block first degree [Recovered/Resolved]
